FAERS Safety Report 4564443-8 (Version None)
Quarter: 2005Q1

REPORT INFORMATION
  Report Type: 
  Country: None (occurrence: None)
  Receive Date: 20050128
  Receipt Date: 20040818
  Transmission Date: 20050727
  Serious: No
  Sender: FDA-Public Use
  Company Number: US-GLAXOSMITHKLINE-A0522642A

PATIENT
  Age: 37 Year
  Sex: Male

DRUGS (3)
  1. EPIVIR [Suspect]
     Indication: HIV INFECTION
     Dosage: 15ML TWICE PER DAY
     Route: 048
     Dates: start: 20040817
  2. RETROVIR [Suspect]
     Indication: HIV INFECTION
     Dosage: 15ML TWICE PER DAY
     Route: 065
     Dates: start: 20040817
  3. KALETRA [Concomitant]

REACTIONS (1)
  - DIARRHOEA [None]
